FAERS Safety Report 12300980 (Version 10)
Quarter: 2017Q2

REPORT INFORMATION
  Report Type: Report from Study
  Country: None (occurrence: JP)
  Receive Date: 20160425
  Receipt Date: 20170411
  Transmission Date: 20170830
  Serious: Yes (Hospitalization)
  Sender: FDA-Public Use
  Company Number: JP-ABBVIE-16P-087-1608497-00

PATIENT
  Age: 73 Year
  Sex: Female
  Weight: 59.9 kg

DRUGS (14)
  1. L-ISOLEUCINE/L-LEUCINE/L-VALINE [Concomitant]
     Indication: CHRONIC HEPATITIS C
     Route: 048
  2. NIFEDIPINE. [Concomitant]
     Active Substance: NIFEDIPINE
     Indication: AORTIC ANEURYSM
     Route: 048
  3. SPIRONOLACTONE. [Concomitant]
     Active Substance: SPIRONOLACTONE
     Indication: CHRONIC HEPATITIS C
     Route: 048
  4. SPIRONOLACTONE. [Concomitant]
     Active Substance: SPIRONOLACTONE
     Indication: HEPATIC CIRRHOSIS
  5. FUROSEMIDE. [Concomitant]
     Active Substance: FUROSEMIDE
     Indication: CHRONIC HEPATITIS C
     Route: 048
  6. ESOMEPRAZOLE MAGNESIUM HYDRATE [Concomitant]
     Indication: VARICES OESOPHAGEAL
     Route: 048
  7. NIFEDIPINE. [Concomitant]
     Active Substance: NIFEDIPINE
     Indication: HYPERTENSION
  8. URSODEOXYCHOLIC ACID [Concomitant]
     Active Substance: URSODIOL
     Indication: CHRONIC HEPATITIS C
     Route: 048
  9. URSODEOXYCHOLIC ACID [Concomitant]
     Active Substance: URSODIOL
     Indication: HEPATITIS C
  10. STRONGER NEO-MINOPHAGEN C, P [Concomitant]
     Indication: CHRONIC HEPATITIS C
     Dosage: 60 MILILITERS DAILY
     Route: 042
  11. VIEKIRAX [Suspect]
     Active Substance: OMBITASVIR\PARITAPREVIR\RITONAVIR
     Indication: CHRONIC HEPATITIS C
     Route: 048
     Dates: start: 20160412, end: 20160415
  12. EDOXABAN TOSILATE HYDRATE [Concomitant]
     Indication: PORTAL VEIN THROMBOSIS
     Route: 048
     Dates: start: 20151228
  13. VIEKIRAX [Interacting]
     Active Substance: OMBITASVIR\PARITAPREVIR\RITONAVIR
     Indication: HEPATIC CIRRHOSIS
  14. ISOSORBIDE DINITRATE. [Concomitant]
     Active Substance: ISOSORBIDE DINITRATE
     Indication: HYPERTENSION
     Route: 048

REACTIONS (7)
  - Decreased appetite [Recovered/Resolved]
  - Aortic aneurysm [Recovering/Resolving]
  - Drug interaction [Unknown]
  - Abdominal discomfort [Recovered/Resolved]
  - Hyperkalaemia [Unknown]
  - Chronic kidney disease [Recovered/Resolved]
  - Blood pressure decreased [Unknown]

NARRATIVE: CASE EVENT DATE: 20160413
